FAERS Safety Report 16571696 (Version 10)
Quarter: 2020Q4

REPORT INFORMATION
  Report Type: Spontaneous
  Country: IN (occurrence: IN)
  Receive Date: 20190715
  Receipt Date: 20201224
  Transmission Date: 20210113
  Serious: Yes (Other)
  Sender: FDA-Public Use
  Company Number: IN-PFIZER INC-2019111745

PATIENT
  Age: 50 Year
  Sex: Female
  Weight: 66 kg

DRUGS (4)
  1. TAMOXIFEN ABIC [Concomitant]
     Dosage: 20 MG, 1X/DAY FOR 3 MONTHS
  2. CRIZALK [Suspect]
     Active Substance: CRIZOTINIB
     Indication: NON-SMALL CELL LUNG CANCER METASTATIC
     Dosage: 250 MG, TWO TIMES A DAY
     Route: 048
     Dates: start: 20140918
  3. FULVESTRANT. [Concomitant]
     Active Substance: FULVESTRANT
     Dosage: 500 MG
  4. LEVIPIL [Concomitant]
     Active Substance: LEVETIRACETAM
     Dosage: 500 MG, 2X/DAY FOR 3 MONTHS

REACTIONS (10)
  - Pain [Unknown]
  - Neoplasm progression [Unknown]
  - Lymphoedema [Unknown]
  - Paget^s disease of nipple [Unknown]
  - Haemoglobin decreased [Unknown]
  - Oedema peripheral [Unknown]
  - Pleural effusion [Unknown]
  - Second primary malignancy [Unknown]
  - Pruritus [Unknown]
  - Headache [Unknown]
